FAERS Safety Report 9005532 (Version 2)
Quarter: 2013Q1

REPORT INFORMATION
  Report Type: Spontaneous
  Country: US (occurrence: US)
  Receive Date: 20130109
  Receipt Date: 20130206
  Transmission Date: 20140127
  Serious: Yes (Hospitalization, Other)
  Sender: FDA-Public Use
  Company Number: US-PFIZER INC-2013008358

PATIENT
  Age: 57 Year
  Sex: Female
  Weight: 75 kg

DRUGS (13)
  1. LYRICA [Suspect]
     Indication: FIBROMYALGIA
     Dosage: 100 MG, 3X/DAY
     Route: 048
     Dates: start: 20110818, end: 20130128
  2. LYRICA [Suspect]
     Indication: PAIN
  3. ACCURETIC [Concomitant]
     Indication: HYPERTENSION
     Dosage: HYDROCHLOROTHIAZIDE20 MG/ QUINAPRIL HYDROCHLORIDE12.5MG, 2X/DAY
     Route: 048
  4. CATAPRES [Concomitant]
     Dosage: 0.2 MG, 2X/DAY
     Route: 048
  5. FLONASE [Concomitant]
     Dosage: 50 UG, 2 SPRAYS EACH NOSTRIL DAILY
  6. IMITREX [Concomitant]
     Dosage: 25 MG, 1 AT ONSET OF HEADACHE, MAY REPEAT 2 HOURS LATER IF NEEDED
     Route: 048
  7. MIRALAX [Concomitant]
     Dosage: 34G , DAILY (17 GM ON 8 OZ OF WATER DAILY OR OTHER BEVERAGE TWO DOSES DAILY)
  8. OMEPRAZOLE [Concomitant]
     Dosage: 40 MG, 2X/DAY
     Route: 048
  9. PREMARIN [Concomitant]
     Dosage: 1.25 MG, 1X/DAY
     Route: 048
  10. PROMETHAZINE [Concomitant]
     Dosage: 25 MG, Q6H AS NEEDED (PRN)
     Route: 048
  11. SENNA [Concomitant]
     Dosage: 25 MG, ONE BID AS NEEDED (PRN)
  12. ZANAFLEX [Concomitant]
     Indication: MUSCLE SPASMS
     Dosage: 4 MG, 2X/DAY
     Route: 048
  13. NORCO [Concomitant]
     Indication: PAIN
     Dosage: 10-352MG, Q8H AS  NEEDED (PRN)

REACTIONS (17)
  - Muscle spasms [Unknown]
  - Swelling [Recovered/Resolved]
  - Venous insufficiency [Recovered/Resolved]
  - Vein disorder [Recovered/Resolved]
  - Contusion [Unknown]
  - Joint stiffness [Unknown]
  - Neck pain [Unknown]
  - Pain in extremity [Recovered/Resolved]
  - Asthenia [Unknown]
  - Fatigue [Unknown]
  - Paraesthesia [Unknown]
  - Myalgia [Unknown]
  - Hypoaesthesia [Unknown]
  - Breast pain [Recovered/Resolved]
  - Drug ineffective [Unknown]
  - Headache [Unknown]
  - Chest pain [Unknown]
